FAERS Safety Report 10284927 (Version 4)
Quarter: 2015Q3

REPORT INFORMATION
  Report Type: Spontaneous
  Country: US (occurrence: US)
  Receive Date: 20140708
  Receipt Date: 20150827
  Transmission Date: 20151125
  Serious: Yes (Hospitalization, Other)
  Sender: FDA-Public Use
  Company Number: US-GLAXOSMITHKLINE-A1079656A

PATIENT
  Age: 54 Year
  Sex: Male

DRUGS (4)
  1. PHENOBARBITAL. [Concomitant]
     Active Substance: PHENOBARBITAL
  2. LAMICTAL [Suspect]
     Active Substance: LAMOTRIGINE
     Indication: SEIZURE
     Dosage: 100 MG TABLETS3 TABLETS AT NIGHT AND 2 IN THE MORNING
     Route: 065
     Dates: start: 1990
  3. LAMOTRIGINE. [Suspect]
     Active Substance: LAMOTRIGINE
     Indication: SEIZURE
     Dosage: 100 MG, AM AND 300MG PM
     Route: 048
     Dates: start: 2009, end: 2009
  4. TOPIRAMATE. [Concomitant]
     Active Substance: TOPIRAMATE

REACTIONS (4)
  - Cerebral disorder [Unknown]
  - Pulmonary embolism [Recovered/Resolved]
  - Drug ineffective [Recovered/Resolved]
  - Seizure [Unknown]

NARRATIVE: CASE EVENT DATE: 2009
